FAERS Safety Report 11727670 (Version 1)
Quarter: 2015Q4

REPORT INFORMATION
  Report Type: Spontaneous
  Country: US (occurrence: US)
  Receive Date: 20151112
  Receipt Date: 20151112
  Transmission Date: 20160304
  Serious: Yes (Death, Other)
  Sender: FDA-Public Use
  Company Number: US-BEH-2015055731

PATIENT
  Age: 17 Year
  Sex: Female

DRUGS (5)
  1. BORTEZOMIB [Suspect]
     Active Substance: BORTEZOMIB
  2. ALEMTUZUMAB [Concomitant]
     Active Substance: ALEMTUZUMAB
  3. IVIG [Suspect]
     Active Substance: HUMAN IMMUNOGLOBULIN G
     Indication: TRANSPLANT REJECTION
  4. PLASMAPHERESIS [Suspect]
     Active Substance: UNSPECIFIED INGREDIENT
  5. RITUXIMAB [Suspect]
     Active Substance: RITUXIMAB

REACTIONS (2)
  - Transplant rejection [Fatal]
  - Drug ineffective for unapproved indication [Unknown]
